FAERS Safety Report 13286484 (Version 3)
Quarter: 2017Q1

REPORT INFORMATION
  Report Type: Spontaneous
  Country: PL (occurrence: PL)
  Receive Date: 20170301
  Receipt Date: 20170316
  Transmission Date: 20170428
  Serious: Yes (Death)
  Sender: FDA-Public Use
  Company Number: PL-BIOMARINAP-PL-2017-112921

PATIENT
  Sex: Male
  Weight: 12 kg

DRUGS (1)
  1. ALDURAZYME [Suspect]
     Active Substance: LARONIDASE
     Indication: MUCOPOLYSACCHARIDOSIS I
     Dosage: UNK
     Route: 041
     Dates: start: 2007, end: 20161221

REACTIONS (4)
  - Cachexia [Fatal]
  - Condition aggravated [Unknown]
  - Malnutrition [Unknown]
  - Pneumonia [Fatal]
